FAERS Safety Report 9271640 (Version 1)
Quarter: 2013Q2

REPORT INFORMATION
  Report Type: Spontaneous
  Country: AT (occurrence: AT)
  Receive Date: 20130506
  Receipt Date: 20130506
  Transmission Date: 20140414
  Serious: Yes (Disabling)
  Sender: FDA-Public Use
  Company Number: AT-PFIZER INC-2013091029

PATIENT
  Age: 27 Year
  Sex: Female
  Weight: 56 kg

DRUGS (1)
  1. SAYANA [Suspect]
     Dosage: UNK
     Dates: start: 2010

REACTIONS (4)
  - Injection site necrosis [Not Recovered/Not Resolved]
  - Injection site haematoma [Recovered/Resolved]
  - Injection site calcification [Recovered/Resolved]
  - Drug administered at inappropriate site [Unknown]
